FAERS Safety Report 9836048 (Version 5)
Quarter: 2014Q4

REPORT INFORMATION
  Report Type: Spontaneous
  Country: US (occurrence: US)
  Receive Date: 20140122
  Receipt Date: 20141027
  Transmission Date: 20150529
  Serious: Yes (Other)
  Sender: FDA-Public Use
  Company Number: US-009507513-1401USA006703

PATIENT
  Age: 20 Year
  Sex: Female
  Weight: 63.95 kg

DRUGS (5)
  1. VITAMINS (UNSPECIFIED) [Concomitant]
     Active Substance: VITAMINS
     Dosage: 1 TAB, QD
     Route: 048
     Dates: start: 20140120, end: 20140820
  2. HYDROXYPROGESTERONE ACETATE [Concomitant]
     Indication: POSTPONEMENT OF PRETERM DELIVERY
     Dosage: 1 ML, QW
     Route: 030
     Dates: start: 20140312, end: 20140807
  3. NEXPLANON [Suspect]
     Active Substance: ETONOGESTREL
     Indication: CONTRACEPTION
     Dosage: ETONOGESTREL IMPLANT
     Route: 059
     Dates: start: 20140107, end: 20140115
  4. PREDNISONE. [Concomitant]
     Active Substance: PREDNISONE
     Indication: URTICARIA
     Dosage: 1 TABLET, TID
     Route: 048
     Dates: start: 20140109, end: 20140113
  5. BENADRYL [Concomitant]
     Active Substance: DIPHENHYDRAMINE HYDROCHLORIDE
     Indication: URTICARIA
     Dosage: 50 MG, Q6H
     Route: 048
     Dates: start: 20140108, end: 20140109

REACTIONS (9)
  - Pruritus [Recovered/Resolved]
  - Urticaria [Recovered/Resolved]
  - Premature delivery [Recovered/Resolved]
  - Pharyngeal oedema [Recovered/Resolved]
  - Swelling face [Recovered/Resolved]
  - Caesarean section [Recovered/Resolved]
  - Rash [Recovered/Resolved]
  - Maternal exposure during pregnancy [Recovered/Resolved]
  - Peripheral swelling [Recovered/Resolved]

NARRATIVE: CASE EVENT DATE: 20140108
